FAERS Safety Report 8834385 (Version 1)
Quarter: 2012Q4

REPORT INFORMATION
  Report Type: Spontaneous
  Country: US (occurrence: None)
  Receive Date: 20121010
  Receipt Date: 20121010
  Transmission Date: 20130627
  Serious: Yes (Other)
  Sender: FDA-Public Use
  Company Number: None

PATIENT
  Age: 80 Year
  Sex: Female
  Weight: 45.81 kg

DRUGS (1)
  1. SALONPAS PAIN RELIEF [Suspect]
     Indication: MUSCLE PAIN
     Dosage: patch  maximum 8- hrs per  IM
     Route: 030
     Dates: start: 20121003, end: 20121004

REACTIONS (1)
  - Skin ulcer [None]
